FAERS Safety Report 9104981 (Version 1)
Quarter: 2013Q1

REPORT INFORMATION
  Report Type: Report from Study
  Country: US (occurrence: US)
  Receive Date: 20130220
  Receipt Date: 20130220
  Transmission Date: 20140127
  Serious: Yes (Death)
  Sender: FDA-Public Use
  Company Number: US-UCBSA-078526

PATIENT
  Sex: 0

DRUGS (1)
  1. LACOSAMIDE [Suspect]
     Dosage: LOADING DOSE OF 400 MG FOLLOWED BY 200 MG 12 HOURS LATER
     Route: 042

REACTIONS (1)
  - Drug ineffective [Fatal]
